FAERS Safety Report 22237176 (Version 2)
Quarter: 2023Q2

REPORT INFORMATION
  Report Type: Spontaneous
  Country: US (occurrence: None)
  Receive Date: 20230421
  Receipt Date: 20230421
  Transmission Date: 20230721
  Serious: No
  Sender: FDA-Public Use
  Company Number: US-ROCHE-3265509

PATIENT
  Sex: Female
  Weight: 57.658 kg

DRUGS (5)
  1. ESBRIET [Suspect]
     Active Substance: PIRFENIDONE
     Indication: Idiopathic pulmonary fibrosis
     Route: 048
  2. ESBRIET [Suspect]
     Active Substance: PIRFENIDONE
     Route: 048
  3. METFORMIN [Concomitant]
     Active Substance: METFORMIN HYDROCHLORIDE
     Indication: Diabetes mellitus
  4. OFEV [Concomitant]
     Active Substance: NINTEDANIB
     Indication: Diabetes mellitus
  5. OFEV [Concomitant]
     Active Substance: NINTEDANIB
     Indication: Weight decreased

REACTIONS (1)
  - Appetite disorder [Recovered/Resolved]
